FAERS Safety Report 24332259 (Version 1)
Quarter: 2024Q3

REPORT INFORMATION
  Report Type: Report from Study
  Country: IE (occurrence: IE)
  Receive Date: 20240918
  Receipt Date: 20240918
  Transmission Date: 20241017
  Serious: Yes (Other)
  Sender: MYLAN
  Company Number: IE-MYLANLABS-2024M1084206

PATIENT
  Age: 23 Year
  Sex: Female

DRUGS (28)
  1. CANDESARTAN [Suspect]
     Active Substance: CANDESARTAN
     Indication: New daily persistent headache
     Dosage: UNK
     Route: 065
  2. CANDESARTAN [Suspect]
     Active Substance: CANDESARTAN
     Indication: Migraine prophylaxis
  3. GABAPENTIN [Suspect]
     Active Substance: GABAPENTIN
     Indication: New daily persistent headache
     Dosage: UNK
     Route: 065
  4. GABAPENTIN [Suspect]
     Active Substance: GABAPENTIN
     Indication: Migraine prophylaxis
  5. ZONISAMIDE [Suspect]
     Active Substance: ZONISAMIDE
     Indication: New daily persistent headache
     Dosage: UNK
     Route: 065
  6. ZONISAMIDE [Suspect]
     Active Substance: ZONISAMIDE
     Indication: Migraine prophylaxis
  7. MEMANTINE [Suspect]
     Active Substance: MEMANTINE
     Indication: New daily persistent headache
     Dosage: UNK
     Route: 065
  8. MEMANTINE [Suspect]
     Active Substance: MEMANTINE
     Indication: Migraine prophylaxis
  9. AMITRIPTYLINE [Suspect]
     Active Substance: AMITRIPTYLINE
     Indication: New daily persistent headache
     Dosage: UNK
     Route: 065
  10. AMITRIPTYLINE [Suspect]
     Active Substance: AMITRIPTYLINE
     Indication: Migraine prophylaxis
  11. BOTOX [Suspect]
     Active Substance: ONABOTULINUMTOXINA
     Indication: New daily persistent headache
     Dosage: UNK
     Route: 065
  12. BOTOX [Suspect]
     Active Substance: ONABOTULINUMTOXINA
     Indication: Migraine prophylaxis
  13. DIHYDROERGOTAMINE MESYLATE [Suspect]
     Active Substance: DIHYDROERGOTAMINE MESYLATE
     Indication: New daily persistent headache
     Dosage: 11.25 MILLIGRAM
     Route: 042
  14. DIHYDROERGOTAMINE MESYLATE [Suspect]
     Active Substance: DIHYDROERGOTAMINE MESYLATE
     Indication: Migraine prophylaxis
  15. FLUNARIZINE [Suspect]
     Active Substance: FLUNARIZINE
     Indication: New daily persistent headache
     Dosage: UNK
     Route: 065
  16. FLUNARIZINE [Suspect]
     Active Substance: FLUNARIZINE
     Indication: Migraine prophylaxis
  17. LIDOCAINE [Suspect]
     Active Substance: LIDOCAINE
     Indication: New daily persistent headache
     Dosage: UNK
     Route: 065
  18. LIDOCAINE [Suspect]
     Active Substance: LIDOCAINE
     Indication: Migraine prophylaxis
  19. METOPROLOL [Suspect]
     Active Substance: METOPROLOL
     Indication: New daily persistent headache
     Dosage: UNK
     Route: 065
  20. METOPROLOL [Suspect]
     Active Substance: METOPROLOL
     Indication: Migraine prophylaxis
  21. MEXILETINE [Suspect]
     Active Substance: MEXILETINE
     Indication: New daily persistent headache
     Dosage: UNK
     Route: 065
  22. MEXILETINE [Suspect]
     Active Substance: MEXILETINE
     Indication: Migraine prophylaxis
  23. NORTRIPTYLINE [Suspect]
     Active Substance: NORTRIPTYLINE
     Indication: New daily persistent headache
     Dosage: UNK
     Route: 065
  24. NORTRIPTYLINE [Suspect]
     Active Substance: NORTRIPTYLINE
     Indication: Migraine prophylaxis
  25. PROPRANOLOL [Suspect]
     Active Substance: PROPRANOLOL HYDROCHLORIDE
     Indication: New daily persistent headache
     Dosage: UNK
     Route: 065
  26. PROPRANOLOL [Suspect]
     Active Substance: PROPRANOLOL HYDROCHLORIDE
     Indication: Migraine prophylaxis
  27. TOPIRAMATE [Suspect]
     Active Substance: TOPIRAMATE
     Indication: New daily persistent headache
     Dosage: UNK
     Route: 065
  28. TOPIRAMATE [Suspect]
     Active Substance: TOPIRAMATE
     Indication: Migraine prophylaxis

REACTIONS (2)
  - Treatment failure [Unknown]
  - Off label use [Unknown]
